FAERS Safety Report 5337093-3 (Version None)
Quarter: 2007Q2

REPORT INFORMATION
  Report Type: 
  Country: None (occurrence: None)
  Receive Date: 20070529
  Receipt Date: 20070522
  Transmission Date: 20071010
  Serious: Yes (Other)
  Sender: FDA-Public Use
  Company Number: FR-BRISTOL-MYERS SQUIBB COMPANY-13780960

PATIENT
  Age: 50 Year
  Sex: Female

DRUGS (1)
  1. COAPROVEL TABS [Suspect]
     Route: 048
     Dates: start: 20070101, end: 20070101

REACTIONS (3)
  - DEHYDRATION [None]
  - HYPOTENSION [None]
  - WEIGHT DECREASED [None]
